FAERS Safety Report 23025832 (Version 1)
Quarter: 2023Q4

REPORT INFORMATION
  Report Type: Spontaneous
  Country: US (occurrence: US)
  Receive Date: 20231004
  Receipt Date: 20231004
  Transmission Date: 20240110
  Serious: Yes (Life-Threatening, Hospitalization, Other)
  Sender: FDA-Public Use
  Company Number: US-MLMSERVICE-20230918-4552173-1

PATIENT

DRUGS (1)
  1. VERAPAMIL [Suspect]
     Active Substance: VERAPAMIL HYDROCHLORIDE
     Indication: Product used for unknown indication
     Dosage: 4080 MILLIGRAM (TOTAL DOSE)
     Route: 048

REACTIONS (3)
  - Toxicity to various agents [Recovering/Resolving]
  - Atrioventricular block complete [Unknown]
  - Blood pressure decreased [Unknown]
